FAERS Safety Report 25330805 (Version 1)
Quarter: 2025Q2

REPORT INFORMATION
  Report Type: Spontaneous
  Country: US (occurrence: None)
  Receive Date: 20250516
  Receipt Date: 20250516
  Transmission Date: 20250717
  Serious: Yes (Other)
  Sender: FDA-CTU
  Company Number: None

PATIENT
  Age: 55 Year
  Sex: Female
  Weight: 69.75 kg

DRUGS (1)
  1. CARVYKTI [Suspect]
     Active Substance: CILTACABTAGENE AUTOLEUCEL
     Indication: Plasma cell myeloma refractory
     Dates: start: 20250422

REACTIONS (5)
  - Hypoaesthesia [None]
  - Facial paralysis [None]
  - Dysphagia [None]
  - Cranial nerve paralysis [None]
  - Neurotoxicity [None]

NARRATIVE: CASE EVENT DATE: 20250512
